FAERS Safety Report 8566326-5 (Version None)
Quarter: 2012Q3

REPORT INFORMATION
  Report Type: 
  Country: None (occurrence: None)
  Receive Date: 20120803
  Receipt Date: 20111028
  Transmission Date: 20120928
  Serious: No
  Sender: FDA-Public Use
  Company Number: US-ABBOTT-11P-163-0869042-00

PATIENT
  Sex: Female

DRUGS (3)
  1. HEART MEDICINES [Concomitant]
     Indication: PRODUCT USED FOR UNKNOWN INDICATION
  2. ASPIRIN [Concomitant]
     Indication: PRODUCT USED FOR UNKNOWN INDICATION
  3. NIASPAN [Suspect]
     Indication: BLOOD CHOLESTEROL ABNORMAL
     Dosage: AT BEDTIME
     Dates: start: 20111026

REACTIONS (4)
  - HEART RATE IRREGULAR [None]
  - PRURITUS [None]
  - FLUSHING [None]
  - ERYTHEMA [None]
